FAERS Safety Report 16067746 (Version 1)
Quarter: 2019Q2

REPORT INFORMATION
  Report Type: Spontaneous
  Country: US (occurrence: US)
  Receive Date: 20190313
  Receipt Date: 20190313
  Transmission Date: 20190711
  Serious: No
  Sender: FDA-Public Use
  Company Number: None

PATIENT
  Age: 44 Year
  Sex: Female
  Weight: 67.5 kg

DRUGS (1)
  1. VANCOMYCIN [Suspect]
     Active Substance: VANCOMYCIN
     Indication: SUBCUTANEOUS ABSCESS
     Route: 041
     Dates: start: 20190118, end: 20190118

REACTIONS (2)
  - Ocular hyperaemia [None]
  - Pruritus [None]

NARRATIVE: CASE EVENT DATE: 20190118
